FAERS Safety Report 24005126 (Version 1)
Quarter: 2024Q2

REPORT INFORMATION
  Report Type: Report from Study
  Country: CO (occurrence: CO)
  Receive Date: 20240624
  Receipt Date: 20240624
  Transmission Date: 20240716
  Serious: Yes (Hospitalization)
  Sender: FDA-Public Use
  Company Number: CO-JNJFOC-20240650999

PATIENT
  Age: 43 Year
  Sex: Female
  Weight: 63 kg

DRUGS (1)
  1. SIMPONI [Suspect]
     Active Substance: GOLIMUMAB
     Indication: Axial spondyloarthritis
     Dosage: DATE OF LAST APPLICATION OF THE DRUG: 03/MAY/2024
     Route: 058
     Dates: start: 20230908

REACTIONS (1)
  - Gastric infection [Recovering/Resolving]

NARRATIVE: CASE EVENT DATE: 20240601
